FAERS Safety Report 7311831-2 (Version None)
Quarter: 2011Q1

REPORT INFORMATION
  Report Type: 
  Country: None (occurrence: None)
  Receive Date: 20110224
  Receipt Date: 20110210
  Transmission Date: 20110831
  Serious: No
  Sender: FDA-Public Use
  Company Number: US-BAYER-2011-014260

PATIENT
  Sex: Female

DRUGS (1)
  1. MIRENA [Suspect]
     Indication: PRODUCT USED FOR UNKNOWN INDICATION
     Dosage: 20 MCG/24HR, CONT
     Route: 015
     Dates: start: 20060901, end: 20110209

REACTIONS (4)
  - PREGNANCY WITH CONTRACEPTIVE DEVICE [None]
  - DEVICE EXPULSION [None]
  - HEADACHE [None]
  - VAGINAL HAEMORRHAGE [None]
